FAERS Safety Report 13227515 (Version 1)
Quarter: 2017Q1

REPORT INFORMATION
  Report Type: Spontaneous
  Country: DE (occurrence: DE)
  Receive Date: 20170213
  Receipt Date: 20170213
  Transmission Date: 20170428
  Serious: Yes (Congenital Anomaly)
  Sender: FDA-Public Use
  Company Number: GXKR2017DE001051

PATIENT

DRUGS (6)
  1. LAMOTRIGIN DURA [Suspect]
     Active Substance: LAMOTRIGINE
     Dosage: THAN 150-0-150 MG/D
     Route: 064
  2. INSULIN BASAL [Concomitant]
     Active Substance: INSULIN NOS
     Indication: GESTATIONAL DIABETES
     Dosage: 11 IU/D, ACC. TO BLOOD GLUCOSE LEVEL 5-11 IU /D, 28.-39.6 GW
     Route: 064
  3. FEMIBION [Concomitant]
     Active Substance: VITAMINS
     Indication: PROPHYLAXIS OF NEURAL TUBE DEFECT
     Route: 064
     Dates: start: 20151007, end: 20160712
  4. QUETIAPINE. [Suspect]
     Active Substance: QUETIAPINE
     Indication: SCHIZOAFFECTIVE DISORDER
     Dosage: 400 MG, QD, 0.-39.6 GW
     Route: 064
     Dates: start: 20151007, end: 20160712
  5. LAMOTRIGIN DURA [Suspect]
     Active Substance: LAMOTRIGINE
     Indication: SCHIZOAFFECTIVE DISORDER
     Dosage: FIRST 125-0-125 MG/D
     Route: 064
     Dates: start: 20151007, end: 20160712
  6. MISOPROSTOL. [Concomitant]
     Active Substance: MISOPROSTOL
     Indication: LABOUR INDUCTION
     Dosage: UNK UKN, UNK
     Route: 064
     Dates: start: 20160712, end: 20160712

REACTIONS (1)
  - Congenital hydronephrosis [Not Recovered/Not Resolved]

NARRATIVE: CASE EVENT DATE: 20160712
